FAERS Safety Report 5489490-3 (Version None)
Quarter: 2007Q4

REPORT INFORMATION
  Report Type: 
  Country: None (occurrence: None)
  Receive Date: 20071016
  Receipt Date: 20071016
  Transmission Date: 20080405
  Serious: No
  Sender: FDA-Public Use
  Company Number: None

PATIENT
  Sex: Female
  Weight: 103 kg

DRUGS (14)
  1. CYCLOPHOSPHAMIDE [Suspect]
     Dosage: 1250 MG
  2. DOXORUBICIN HCL [Suspect]
     Dosage: 125 MG
  3. ZANAFLEX [Concomitant]
  4. LISINOPRIL [Concomitant]
  5. ACTOS [Concomitant]
  6. ADVAIR DISKUS 100/50 [Concomitant]
  7. ARTHROTEC [Concomitant]
  8. DILAUDID SUBCUTANEOUS PUMP [Concomitant]
  9. MODURETIC 5-50 [Concomitant]
  10. NASACORT [Concomitant]
  11. PLAQUENIL [Concomitant]
  12. SALAGEN [Concomitant]
  13. SINGULAIR [Concomitant]
  14. TOPROL-XL [Concomitant]

REACTIONS (14)
  - ANOREXIA [None]
  - BLOOD GLUCOSE ABNORMAL [None]
  - BREAST ABSCESS [None]
  - CANDIDIASIS [None]
  - DRUG TOXICITY [None]
  - FATIGUE [None]
  - HAEMOGLOBIN ABNORMAL [None]
  - HEADACHE [None]
  - HEART RATE INCREASED [None]
  - HYPOKALAEMIA [None]
  - NAUSEA [None]
  - RESPIRATORY RATE INCREASED [None]
  - STOMATITIS [None]
  - WHITE BLOOD CELL COUNT ABNORMAL [None]
